FAERS Safety Report 4608267-1 (Version None)
Quarter: 2005Q1

REPORT INFORMATION
  Report Type: 
  Country: None (occurrence: None)
  Receive Date: 20050311
  Receipt Date: 20050301
  Transmission Date: 20050727
  Serious: Yes (Other)
  Sender: FDA-Public Use
  Company Number: US014711

PATIENT
  Age: 56 Year
  Sex: Male
  Weight: 83.4 kg

DRUGS (9)
  1. FENTANYL CITRATE [Suspect]
     Indication: CANCER PAIN
     Dosage: 1600 UG PRN BUCCAL
     Route: 002
     Dates: start: 20050212, end: 20050215
  2. GABAPENTIN [Suspect]
     Indication: ANALGESIC EFFECT
     Dosage: 600 MG DAILY
     Dates: start: 20040101, end: 20050215
  3. OXYCONTIN [Suspect]
     Indication: ANALGESIC EFFECT
     Dosage: 80 MG DAILY
     Dates: start: 20040101
  4. OXYNORM [Suspect]
     Indication: ANALGESIC EFFECT
     Dosage: 30 MG DAILY
     Dates: start: 20040101
  5. PARACETAMOL [Concomitant]
  6. DEXAMETHAZONE-PIX [Concomitant]
  7. LANSOPRAZOLE [Concomitant]
  8. LAXOBERAL [Concomitant]
  9. CAPECITABINE [Concomitant]

REACTIONS (3)
  - COMMUNICATION DISORDER [None]
  - DISORIENTATION [None]
  - DRUG TOXICITY [None]
